FAERS Safety Report 7916638-0 (Version None)
Quarter: 2011Q4

REPORT INFORMATION
  Report Type: 
  Country: None (occurrence: None)
  Receive Date: 20111116
  Receipt Date: 20111109
  Transmission Date: 20120403
  Serious: No
  Sender: FDA-Public Use
  Company Number: US-PFIZER INC-2011275724

PATIENT
  Sex: Female
  Weight: 77.098 kg

DRUGS (2)
  1. OMEPRAZOLE [Concomitant]
     Indication: GASTROOESOPHAGEAL REFLUX DISEASE
     Dosage: 20 MG DAILY
  2. ZITHROMAX [Suspect]
     Indication: EAR INFECTION
     Dosage: 250 MG, 2X/DAY
     Dates: start: 20111107

REACTIONS (1)
  - RASH [None]
